FAERS Safety Report 8600701-5 (Version None)
Quarter: 2012Q3

REPORT INFORMATION
  Report Type: 
  Country: None (occurrence: None)
  Receive Date: 20120817
  Receipt Date: 20120814
  Transmission Date: 20120928
  Serious: Yes (Other)
  Sender: FDA-Public Use
  Company Number: US-AMGEN-USASP2012051387

PATIENT
  Sex: Female

DRUGS (1)
  1. ENBREL [Suspect]
     Indication: RHEUMATOID ARTHRITIS
     Dosage: UNK
     Dates: start: 20120701

REACTIONS (7)
  - VISION BLURRED [None]
  - HYPERHIDROSIS [None]
  - MACULE [None]
  - TREMOR [None]
  - MICTURITION FREQUENCY DECREASED [None]
  - NAUSEA [None]
  - VOMITING [None]
